FAERS Safety Report 13203174 (Version 4)
Quarter: 2017Q2

REPORT INFORMATION
  Report Type: Spontaneous
  Country: US (occurrence: US)
  Receive Date: 20170209
  Receipt Date: 20170407
  Transmission Date: 20170830
  Serious: No
  Sender: FDA-Public Use
  Company Number: US-VERTEX PHARMACEUTICALS-2017-000670

PATIENT
  Sex: Male

DRUGS (13)
  1. ADVAIR HFA [Concomitant]
     Active Substance: FLUTICASONE PROPIONATE\SALMETEROL XINAFOATE
  2. ANTIHISTAMINES [Concomitant]
     Active Substance: ANTIHISTAMINES NOS
  3. ALBUTEROL. [Concomitant]
     Active Substance: ALBUTEROL
  4. LANTUS [Concomitant]
     Active Substance: INSULIN GLARGINE
  5. LANSOPRAZOLE. [Concomitant]
     Active Substance: LANSOPRAZOLE
  6. HUMALOG [Concomitant]
     Active Substance: INSULIN LISPRO
  7. PREVACID [Concomitant]
     Active Substance: LANSOPRAZOLE
  8. ORKAMBI [Suspect]
     Active Substance: IVACAFTOR\LUMACAFTOR
     Indication: CYSTIC FIBROSIS
     Dosage: 2 DF (200/125MG EACH), BID
     Route: 048
     Dates: start: 20150920
  9. AZITHROMYCIN ANHYDROUS. [Concomitant]
     Active Substance: AZITHROMYCIN ANHYDROUS
  10. NOVOLOG [Concomitant]
     Active Substance: INSULIN ASPART
  11. PULMOZYME [Concomitant]
     Active Substance: DORNASE ALFA
  12. TOBI [Concomitant]
     Active Substance: TOBRAMYCIN
  13. PANCREASE MT [Concomitant]
     Active Substance: PANCRELIPASE

REACTIONS (1)
  - Diarrhoea [Not Recovered/Not Resolved]
